FAERS Safety Report 21797911 (Version 1)
Quarter: 2022Q4

REPORT INFORMATION
  Report Type: Spontaneous
  Country: DE (occurrence: DE)
  Receive Date: 20221230
  Receipt Date: 20221230
  Transmission Date: 20230113
  Serious: Yes (Other)
  Sender: FDA-Public Use
  Company Number: DE-PADAGIS-2022PAD01246

PATIENT

DRUGS (3)
  1. CYCLOSPORINE [Suspect]
     Active Substance: CYCLOSPORINE
     Indication: Chronic actinic dermatitis
     Dosage: 150?300 MG/D
     Route: 065
  2. CYCLOSPORINE [Suspect]
     Active Substance: CYCLOSPORINE
     Dosage: 300 MG/D TO 100 MG/D, DOSE REDUCED
     Route: 065
  3. BEXAROTENE [Concomitant]
     Active Substance: BEXAROTENE
     Indication: T-cell lymphoma
     Dosage: 150 MG/M2 DAILY
     Route: 065

REACTIONS (2)
  - Anaplastic large cell lymphoma T- and null-cell types [None]
  - Product use in unapproved indication [Unknown]
